FAERS Safety Report 25450677 (Version 2)
Quarter: 2025Q2

REPORT INFORMATION
  Report Type: Spontaneous
  Country: GB (occurrence: GB)
  Receive Date: 20250618
  Receipt Date: 20250630
  Transmission Date: 20250717
  Serious: Yes (Other)
  Sender: MYLAN
  Company Number: GB-MHRA-TPP17002324C6050845YC1749724212381

PATIENT
  Age: 76 Year
  Sex: Female
  Weight: 66 kg

DRUGS (10)
  1. CITALOPRAM [Suspect]
     Active Substance: CITALOPRAM
     Indication: Depressed mood
     Dosage: 10 MILLIGRAM, AM (EACH MORNING)
     Dates: start: 20250604
  2. COCODAMOL [Concomitant]
     Active Substance: ACETAMINOPHEN\CODEINE PHOSPHATE
     Indication: Ill-defined disorder
     Dosage: 2 DOSAGE FORM, QID (2 TO BE TAKEN FOUR TIMES DAILY)
     Dates: start: 20250130
  3. POTASSIUM BICARBONATE\SODIUM ALGINATE [Concomitant]
     Active Substance: POTASSIUM BICARBONATE\SODIUM ALGINATE
     Indication: Ill-defined disorder
     Dosage: 10 MILLILITER, QID (10MLS 4 TIMES DAILY, LAST DOSE AT NIGHT)
     Dates: start: 20250226
  4. ARIPIPRAZOLE [Concomitant]
     Active Substance: ARIPIPRAZOLE
     Indication: Ill-defined disorder
     Dosage: 0.5 DOSAGE FORM, PM (TAKE HALF DAILY AT NIGHT)
     Dates: start: 20250130
  5. ATORVASTATIN [Concomitant]
     Active Substance: ATORVASTATIN
     Indication: Blood cholesterol abnormal
     Dosage: 1 DOSAGE FORM, PM (TAKE ONE EACH NIGHT)
     Dates: start: 20250130
  6. ATORVASTATIN [Concomitant]
     Active Substance: ATORVASTATIN
     Indication: Ill-defined disorder
  7. IBUPROFEN [Concomitant]
     Active Substance: IBUPROFEN
     Indication: Pain
     Dosage: UNK, TID (APPLY THREE TIMES DAILY)
     Dates: start: 20250130
  8. IBUPROFEN [Concomitant]
     Active Substance: IBUPROFEN
     Indication: Ill-defined disorder
  9. MEMANTINE [Concomitant]
     Active Substance: MEMANTINE
     Indication: Ill-defined disorder
     Dosage: 1 DOSAGE FORM, QD, (TAKE ONE DAILY)
     Dates: start: 20250130
  10. RABEPRAZOLE [Concomitant]
     Active Substance: RABEPRAZOLE
     Indication: Ill-defined disorder
     Dosage: 1 DOSAGE FORM, BID (1 TO BE TAKEN TWICE DAILY)
     Dates: start: 20250312

REACTIONS (2)
  - Dizziness [Recovered/Resolved]
  - Balance disorder [Unknown]
